FAERS Safety Report 18972791 (Version 1)
Quarter: 2021Q1

REPORT INFORMATION
  Report Type: Spontaneous
  Country: US (occurrence: US)
  Receive Date: 20210305
  Receipt Date: 20210305
  Transmission Date: 20210420
  Serious: No
  Sender: FDA-Public Use
  Company Number: US-GLAXOSMITHKLINE-US2021054382

PATIENT
  Age: 93 Year
  Sex: Female

DRUGS (3)
  1. TRELEGY ELLIPTA [Suspect]
     Active Substance: FLUTICASONE FUROATE\UMECLIDINIUM BROMIDE\VILANTEROL TRIFENATATE
     Indication: ASTHMA
     Dosage: 1 PUFF(S), 1D
     Route: 055
  2. SYMBICORT [Concomitant]
     Active Substance: BUDESONIDE\FORMOTEROL FUMARATE DIHYDRATE
     Indication: ASTHMA
     Dosage: UNK
  3. ZOLAR NOS [Concomitant]
     Indication: ASTHMA
     Dosage: UNK

REACTIONS (9)
  - Hypoacusis [Unknown]
  - Arthralgia [Unknown]
  - Arthritis [Unknown]
  - Ear pain [Unknown]
  - Sciatica [Unknown]
  - Back pain [Unknown]
  - Pain in extremity [Unknown]
  - Facial pain [Unknown]
  - Asthenia [Unknown]

NARRATIVE: CASE EVENT DATE: 202012
